FAERS Safety Report 26211901 (Version 1)
Quarter: 2025Q4

REPORT INFORMATION
  Report Type: Report from Study
  Country: TR (occurrence: TR)
  Receive Date: 20251230
  Receipt Date: 20251230
  Transmission Date: 20260117
  Serious: Yes (Other)
  Sender: RANBAXY
  Company Number: TR-SUN PHARMACEUTICAL INDUSTRIES LTD-2025R1-543943

PATIENT
  Age: 28 Year
  Sex: Female

DRUGS (1)
  1. MEMANTINE [Suspect]
     Active Substance: MEMANTINE
     Indication: Encephalitis autoimmune
     Dosage: 20 MG/DX
     Route: 065

REACTIONS (1)
  - Therapy partial responder [Unknown]
